FAERS Safety Report 7013142-1 (Version None)
Quarter: 2010Q3

REPORT INFORMATION
  Report Type: 
  Country: None (occurrence: None)
  Receive Date: 20100924
  Receipt Date: 20100915
  Transmission Date: 20110219
  Serious: Yes (Hospitalization)
  Sender: FDA-Public Use
  Company Number: BR-ASTRAZENECA-2010SE43932

PATIENT
  Age: 64 Year
  Sex: Male
  Weight: 71 kg

DRUGS (2)
  1. ATACAND [Suspect]
     Indication: HYPERTENSION
     Dosage: 1/2 TABLET OD
     Route: 048
     Dates: start: 20000101, end: 20100801
  2. OMEPRAZOLE [Suspect]
     Route: 048
     Dates: start: 20000101

REACTIONS (4)
  - CHEST PAIN [None]
  - DYSPNOEA [None]
  - FATIGUE [None]
  - TREMOR [None]
